FAERS Safety Report 5048555-0 (Version None)
Quarter: 2006Q3

REPORT INFORMATION
  Report Type: 
  Country: None (occurrence: None)
  Receive Date: 20060712
  Receipt Date: 20060621
  Transmission Date: 20061208
  Serious: Yes (Hospitalization)
  Sender: FDA-Public Use
  Company Number: 2006AP02886

PATIENT
  Age: 25302 Day
  Sex: Male

DRUGS (13)
  1. OMEPRAL [Suspect]
     Indication: GASTRIC ULCER HELICOBACTER
     Route: 048
     Dates: start: 20060427, end: 20060503
  2. AMOLIN [Concomitant]
     Indication: GASTRIC ULCER HELICOBACTER
     Route: 048
     Dates: start: 20060427, end: 20060503
  3. CLARITHROMYCIN [Concomitant]
     Indication: GASTRIC ULCER HELICOBACTER
     Route: 048
     Dates: start: 20060427, end: 20060503
  4. DIOVAN [Concomitant]
     Indication: HYPERTENSION
     Route: 048
     Dates: start: 20060403, end: 20060501
  5. CRAVIT [Concomitant]
     Indication: BRONCHITIS ACUTE
     Route: 048
     Dates: start: 20060424, end: 20060427
  6. CRAVIT [Concomitant]
     Indication: BRONCHITIS
     Route: 048
     Dates: start: 20060424, end: 20060427
  7. CRAVIT [Concomitant]
     Route: 048
     Dates: start: 20060506, end: 20060501
  8. CRAVIT [Concomitant]
     Route: 048
     Dates: start: 20060506, end: 20060501
  9. SAWATENE [Concomitant]
     Indication: BRONCHITIS ACUTE
     Route: 048
     Dates: start: 20060424, end: 20060427
  10. SAWATENE [Concomitant]
     Indication: BRONCHITIS
     Route: 048
     Dates: start: 20060424, end: 20060427
  11. SAWATENE [Concomitant]
     Route: 048
     Dates: start: 20060506, end: 20060501
  12. SAWATENE [Concomitant]
     Route: 048
     Dates: start: 20060506, end: 20060501
  13. ETICALM [Concomitant]
     Indication: ANXIETY DISORDER
     Route: 048
     Dates: start: 20060424, end: 20060501

REACTIONS (5)
  - ARTHRALGIA [None]
  - INTERSTITIAL LUNG DISEASE [None]
  - PYREXIA [None]
  - SPUTUM RETENTION [None]
  - UPPER RESPIRATORY TRACT INFECTION [None]
